FAERS Safety Report 6149738-9 (Version None)
Quarter: 2009Q2

REPORT INFORMATION
  Report Type: 
  Country: None (occurrence: None)
  Receive Date: 20090402
  Receipt Date: 20090128
  Transmission Date: 20091009
  Serious: Yes (Other)
  Sender: FDA-Public Use
  Company Number: 2009SU0026

PATIENT
  Age: 85 Year
  Sex: Female

DRUGS (4)
  1. SULAR [Suspect]
     Indication: HYPERTENSION
     Dosage: 17 MG; 25.5 MG; 34 MG, DAILY 25.5MG, DAILY
     Dates: start: 20080301
  2. SULAR [Suspect]
     Indication: HYPERTENSION
     Dates: start: 20090101, end: 20090127
  3. CLONIDINE [Concomitant]
  4. . [Concomitant]

REACTIONS (4)
  - DRUG ADMINISTRATION ERROR [None]
  - DRUG INEFFECTIVE [None]
  - FREQUENT BOWEL MOVEMENTS [None]
  - OEDEMA PERIPHERAL [None]
